FAERS Safety Report 21944550 (Version 2)
Quarter: 2025Q3

REPORT INFORMATION
  Report Type: Spontaneous
  Country: EU (occurrence: EU)
  Receive Date: 20230202
  Receipt Date: 20250820
  Transmission Date: 20251020
  Serious: Yes (Other)
  Sender: MYLAN
  Company Number: EU-TEVA-2022-PT-2839681

PATIENT
  Age: 40 Year
  Sex: Male

DRUGS (24)
  1. SERTRALINE [Suspect]
     Active Substance: SERTRALINE HYDROCHLORIDE
     Indication: Product used for unknown indication
  2. SERTRALINE [Suspect]
     Active Substance: SERTRALINE HYDROCHLORIDE
     Route: 048
  3. SERTRALINE [Suspect]
     Active Substance: SERTRALINE HYDROCHLORIDE
     Route: 048
  4. SERTRALINE [Suspect]
     Active Substance: SERTRALINE HYDROCHLORIDE
  5. FLUOXETINE [Suspect]
     Active Substance: FLUOXETINE HYDROCHLORIDE
     Indication: Narcolepsy
     Dosage: 20 MILLIGRAM, QD (ONCE A DAY)
  6. FLUOXETINE [Suspect]
     Active Substance: FLUOXETINE HYDROCHLORIDE
     Dosage: 20 MILLIGRAM, QD (ONCE A DAY)
     Route: 048
  7. FLUOXETINE [Suspect]
     Active Substance: FLUOXETINE HYDROCHLORIDE
     Dosage: 20 MILLIGRAM, QD (ONCE A DAY)
     Route: 048
  8. FLUOXETINE [Suspect]
     Active Substance: FLUOXETINE HYDROCHLORIDE
     Dosage: 20 MILLIGRAM, QD (ONCE A DAY)
  9. MODAFINIL [Concomitant]
     Active Substance: MODAFINIL
     Indication: Narcolepsy
     Dosage: 400 MILLIGRAM, QD (ONCE A DAY)
     Route: 065
  10. MODAFINIL [Concomitant]
     Active Substance: MODAFINIL
     Dosage: 400 MILLIGRAM, QD (ONCE A DAY)
  11. MODAFINIL [Concomitant]
     Active Substance: MODAFINIL
     Dosage: 400 MILLIGRAM, QD (ONCE A DAY)
  12. MODAFINIL [Concomitant]
     Active Substance: MODAFINIL
     Dosage: 400 MILLIGRAM, QD (ONCE A DAY)
     Route: 065
  13. MODAFINIL [Concomitant]
     Active Substance: MODAFINIL
     Dosage: 100 MILLIGRAM, TWO TIMES A DAY
     Route: 065
  14. MODAFINIL [Concomitant]
     Active Substance: MODAFINIL
     Dosage: 100 MILLIGRAM, TWO TIMES A DAY
  15. MODAFINIL [Concomitant]
     Active Substance: MODAFINIL
     Dosage: 100 MILLIGRAM, TWO TIMES A DAY
  16. MODAFINIL [Concomitant]
     Active Substance: MODAFINIL
     Dosage: 100 MILLIGRAM, TWO TIMES A DAY
     Route: 065
  17. MODAFINIL [Concomitant]
     Active Substance: MODAFINIL
     Dosage: 200 MILLIGRAM, TWO TIMES A DAY
     Route: 065
  18. MODAFINIL [Concomitant]
     Active Substance: MODAFINIL
     Dosage: 200 MILLIGRAM, TWO TIMES A DAY
     Route: 065
  19. MODAFINIL [Concomitant]
     Active Substance: MODAFINIL
     Dosage: 200 MILLIGRAM, TWO TIMES A DAY
  20. MODAFINIL [Concomitant]
     Active Substance: MODAFINIL
     Dosage: 200 MILLIGRAM, TWO TIMES A DAY
  21. CLONAZEPAM [Concomitant]
     Active Substance: CLONAZEPAM
     Indication: Product used for unknown indication
     Dosage: 0.5 MILLIGRAM, DAILY
  22. CLONAZEPAM [Concomitant]
     Active Substance: CLONAZEPAM
     Dosage: 0.5 MILLIGRAM, DAILY
     Route: 065
  23. CLONAZEPAM [Concomitant]
     Active Substance: CLONAZEPAM
     Dosage: 0.5 MILLIGRAM, DAILY
     Route: 065
  24. CLONAZEPAM [Concomitant]
     Active Substance: CLONAZEPAM
     Dosage: 0.5 MILLIGRAM, DAILY

REACTIONS (3)
  - Restless legs syndrome [Recovered/Resolved]
  - Product use in unapproved indication [Unknown]
  - Off label use [Unknown]
